FAERS Safety Report 4727241-8 (Version None)
Quarter: 2005Q3

REPORT INFORMATION
  Report Type: 
  Country: None (occurrence: None)
  Receive Date: 20050727
  Receipt Date: 20050727
  Transmission Date: 20060218
  Serious: Yes (Hospitalization)
  Sender: FDA-Public Use
  Company Number: None

PATIENT
  Age: 64 Year
  Sex: Male
  Weight: 120 kg

DRUGS (4)
  1. WARFARIN [Suspect]
     Indication: CARDIAC FAILURE CONGESTIVE
     Dosage: VARIOUS, VARIOUS, ORAL
     Route: 048
  2. POTASSIUM CHLORIDE [Concomitant]
  3. GLIPIZIDE [Concomitant]
  4. SODIUM CHLORIDE [Concomitant]

REACTIONS (1)
  - INTERNATIONAL NORMALISED RATIO INCREASED [None]
